FAERS Safety Report 20731278 (Version 3)
Quarter: 2022Q2

REPORT INFORMATION
  Report Type: Spontaneous
  Country: CH (occurrence: CH)
  Receive Date: 20220420
  Receipt Date: 20220623
  Transmission Date: 20220721
  Serious: Yes (Hospitalization)
  Sender: FDA-Public Use
  Company Number: CH-AMERICAN REGENT INC-2022001066

PATIENT
  Age: 7 Year
  Sex: Female
  Weight: 10 kg

DRUGS (25)
  1. VENOFER [Suspect]
     Active Substance: IRON SUCROSE
     Indication: Anaemia
     Dosage: 30 MILLIGRAM, 1 IN 1 TOTAL
     Dates: start: 20220315, end: 20220315
  2. VENOFER [Suspect]
     Active Substance: IRON SUCROSE
     Dosage: 50 MILLIGRAM, 1 IN 1 TOTAL
     Dates: start: 20220317, end: 20220317
  3. ACETAMINOPHEN [Suspect]
     Active Substance: ACETAMINOPHEN
     Indication: Pain
     Dosage: 150 MILLIGRAM, 4 IN 1 D
     Route: 048
     Dates: start: 20220311, end: 20220319
  4. ACETAMINOPHEN [Suspect]
     Active Substance: ACETAMINOPHEN
     Indication: Pyrexia
  5. ACETAMINOPHEN [Suspect]
     Active Substance: ACETAMINOPHEN
     Indication: Abdominal pain
  6. NOVALGIN (METAMIZOLE SODIUM) [Suspect]
     Active Substance: METAMIZOLE SODIUM
     Indication: Pain
     Dosage: 150 MILLIGRAM, ONCE DAILY
     Route: 048
     Dates: start: 20220315, end: 20220315
  7. NOVALGIN (METAMIZOLE SODIUM) [Suspect]
     Active Substance: METAMIZOLE SODIUM
     Indication: Pyrexia
     Dosage: 150 MILLIGRAM, THREE TIMES (AS REQUIRED)
     Route: 048
     Dates: start: 20220317, end: 20220317
  8. NOVALGIN (METAMIZOLE SODIUM) [Suspect]
     Active Substance: METAMIZOLE SODIUM
     Dosage: UNK
     Dates: start: 20220319
  9. OMEPRAZOLE [Suspect]
     Active Substance: OMEPRAZOLE
     Indication: Gastrooesophageal reflux disease
     Dosage: 10 MILLIGRAM, 1 IN 1 D
     Route: 048
     Dates: start: 20220311, end: 20220317
  10. NEXIUM [Suspect]
     Active Substance: ESOMEPRAZOLE MAGNESIUM
     Indication: Product used for unknown indication
     Dosage: 10 MILLIGRAM, 1 IN 1 D
     Route: 048
     Dates: start: 20220318
  11. LASIX [Suspect]
     Active Substance: FUROSEMIDE
     Indication: Oedema due to cardiac disease
     Dosage: 2 MILLIGRAM, BID
     Route: 048
     Dates: start: 20220316
  12. LASIX [Suspect]
     Active Substance: FUROSEMIDE
     Indication: Oedema due to hepatic disease
  13. ROCEPHIN [Suspect]
     Active Substance: CEFTRIAXONE SODIUM
     Indication: Respiratory tract infection
     Dosage: 750 MILLIGRAM, 1 IN 1 D
     Dates: start: 20220310, end: 20220312
  14. ROCEPHIN [Suspect]
     Active Substance: CEFTRIAXONE SODIUM
     Indication: Kidney infection
  15. ROCEPHIN [Suspect]
     Active Substance: CEFTRIAXONE SODIUM
     Indication: Urinary tract infection
  16. ROCEPHIN [Suspect]
     Active Substance: CEFTRIAXONE SODIUM
     Indication: Abdominal infection
  17. ROCEPHIN [Suspect]
     Active Substance: CEFTRIAXONE SODIUM
     Indication: Sepsis
  18. ROCEPHIN [Suspect]
     Active Substance: CEFTRIAXONE SODIUM
     Indication: Infection
  19. IRON POLYMALTOSE [Suspect]
     Active Substance: IRON POLYMALTOSE
     Indication: Anaemia
     Dosage: 15 MILLIGRAM, 2  IN 1 D
     Route: 048
     Dates: start: 20220310
  20. FLATULEX [SIMETICONE] [Concomitant]
     Indication: Flatulence
     Dosage: 41.2 MILLIGRAM, 4 IN 1 D
     Route: 048
     Dates: start: 20220312, end: 22020319
  21. CALCIUM CARBONATE [Concomitant]
     Active Substance: CALCIUM CARBONATE
     Indication: Product used for unknown indication
     Dosage: TOTAL OF THREE DOSES (100 MILLIGRAM, 3 TOTAL)
     Route: 048
     Dates: start: 20220312, end: 20220313
  22. NATRIUM BICARBONAT [Concomitant]
     Indication: Acidosis
     Dosage: 5 MILLIMOL, 3 IN 1 D
     Route: 048
     Dates: start: 20220312, end: 20220314
  23. VITAMINS [Concomitant]
     Active Substance: VITAMINS
     Indication: Product used for unknown indication
     Dosage: 10 ML, 1 IN 1 D
     Dates: start: 20220316
  24. EPREX [Concomitant]
     Active Substance: ERYTHROPOIETIN
     Indication: Product used for unknown indication
     Dosage: 1000 IU INTERNATIONAL UNIT(S)
     Route: 058
     Dates: start: 20220314, end: 20220316
  25. POTASSIUM CITRATE [Concomitant]
     Active Substance: POTASSIUM CITRATE
     Indication: Acidosis
     Dosage: UNK
     Route: 048
     Dates: start: 20220314, end: 20220316

REACTIONS (1)
  - Hepatic enzyme increased [Recovering/Resolving]

NARRATIVE: CASE EVENT DATE: 20220301
